FAERS Safety Report 8571922-5 (Version None)
Quarter: 2012Q2

REPORT INFORMATION
  Report Type: 
  Country: None (occurrence: None)
  Receive Date: 20120423
  Receipt Date: 20100910
  Transmission Date: 20120825
  Serious: Yes (Other)
  Sender: FDA-Public Use
  Company Number: PHHY2010US55096

PATIENT
  Age: 27 Year
  Sex: Male
  Weight: 94.3 kg

DRUGS (1)
  1. EXJADE [Suspect]
     Indication: ACUTE MYELOID LEUKAEMIA
     Dosage: 1000 MG, ORAL
     Route: 048
     Dates: start: 20100805

REACTIONS (1)
  - BLOOD CREATININE INCREASED [None]
